FAERS Safety Report 19894084 (Version 1)
Quarter: 2021Q3

REPORT INFORMATION
  Report Type: Spontaneous
  Country: US (occurrence: US)
  Receive Date: 20210928
  Receipt Date: 20210928
  Transmission Date: 20211014
  Serious: No
  Sender: FDA-Public Use
  Company Number: None

PATIENT
  Age: 26 Year
  Sex: Female
  Weight: 60.75 kg

DRUGS (5)
  1. PROBIOTICS [Concomitant]
     Active Substance: PROBIOTICS NOS
  2. SPIRONOLACTONE. [Suspect]
     Active Substance: SPIRONOLACTONE
     Indication: ACNE CYSTIC
  3. SPIRONOLACTONE 100MG [Concomitant]
     Active Substance: SPIRONOLACTONE
  4. SPIRONOLACTONE. [Suspect]
     Active Substance: SPIRONOLACTONE
     Indication: ACNE
  5. OMEGAS [Concomitant]

REACTIONS (3)
  - Hair disorder [None]
  - Trichorrhexis [None]
  - Hair texture abnormal [None]

NARRATIVE: CASE EVENT DATE: 20210801
